FAERS Safety Report 8389995-1 (Version None)
Quarter: 2012Q2

REPORT INFORMATION
  Report Type: 
  Country: None (occurrence: None)
  Receive Date: 20120521
  Receipt Date: 20120516
  Transmission Date: 20120825
  Serious: Yes (Hospitalization, Other)
  Sender: FDA-Public Use
  Company Number: 2010SP062564

PATIENT
  Age: 28 Year
  Sex: Female
  Weight: 131.5431 kg

DRUGS (1)
  1. NUVARING [Suspect]
     Indication: CONTRACEPTION
     Dates: start: 20040101, end: 20080101

REACTIONS (31)
  - PNEUMONIA [None]
  - SINUSITIS [None]
  - IRRITABLE BOWEL SYNDROME [None]
  - DERMATITIS CONTACT [None]
  - EMOTIONAL DISORDER [None]
  - TENSION HEADACHE [None]
  - OSTEOARTHRITIS [None]
  - LABORATORY TEST ABNORMAL [None]
  - HYPERHIDROSIS [None]
  - VERTIGO [None]
  - UTERINE LEIOMYOMA [None]
  - DEEP VEIN THROMBOSIS [None]
  - BRONCHITIS [None]
  - UTERINE ENLARGEMENT [None]
  - HYPOTHYROIDISM [None]
  - MUSCLE TWITCHING [None]
  - ANXIETY [None]
  - DERMOID CYST [None]
  - TINEA PEDIS [None]
  - PULMONARY EMBOLISM [None]
  - MIGRAINE [None]
  - OVARIAN CYST [None]
  - SLEEP APNOEA SYNDROME [None]
  - SUICIDAL IDEATION [None]
  - MENTAL DISORDER [None]
  - COGNITIVE DISORDER [None]
  - ABDOMINAL PAIN LOWER [None]
  - SINUS TACHYCARDIA [None]
  - HYPOAESTHESIA [None]
  - OTITIS MEDIA [None]
  - MEMORY IMPAIRMENT [None]
